FAERS Safety Report 16588931 (Version 3)
Quarter: 2022Q3

REPORT INFORMATION
  Report Type: Spontaneous
  Country: FR (occurrence: FR)
  Receive Date: 20190718
  Receipt Date: 20220705
  Transmission Date: 20221027
  Serious: Yes (Hospitalization, Other)
  Sender: FDA-Public Use
  Company Number: None

PATIENT
  Age: 61 Year
  Sex: Male
  Weight: 83.6 kg

DRUGS (11)
  1. VYXEOS [Suspect]
     Active Substance: CYTARABINE\DAUNORUBICIN
     Indication: Acute myeloid leukaemia
     Dosage: 86/195 MG PERF DE 90MIN ? J1, J3, J5 ; CYCLICAL
     Route: 042
     Dates: start: 20190524, end: 20190528
  2. PIPERACILLIN SODIUM\TAZOBACTAM SODIUM [Suspect]
     Active Substance: PIPERACILLIN SODIUM\TAZOBACTAM SODIUM
     Indication: Infection
     Dosage: 4 DOSAGE FORM
     Route: 042
     Dates: start: 20190526, end: 20190621
  3. FLUCONAZOLE [Suspect]
     Active Substance: FLUCONAZOLE
     Indication: Fungal infection
     Dosage: 400 MG, QD (2-0-0)
     Route: 048
     Dates: start: 20190524, end: 20190527
  4. EXJADE [Suspect]
     Active Substance: DEFERASIROX
     Indication: Iron overload
     Dosage: 1-0-1
     Route: 048
     Dates: end: 20190525
  5. EXJADE [Suspect]
     Active Substance: DEFERASIROX
     Dosage: 1-0-1
     Route: 048
     Dates: start: 20190606, end: 20190616
  6. EXJADE [Suspect]
     Active Substance: DEFERASIROX
     Dosage: 180 MILLIGRAM, QD
     Route: 048
     Dates: start: 20190525, end: 20190531
  7. EXJADE [Suspect]
     Active Substance: DEFERASIROX
     Dosage: 360 MILLIGRAM, QD
     Route: 048
     Dates: start: 20190606, end: 20190616
  8. ATORVASTATIN [Suspect]
     Active Substance: ATORVASTATIN
     Indication: Hypercholesterolaemia
     Dosage: 0-0-1
     Route: 048
     Dates: start: 20190522, end: 20190619
  9. VALACYCLOVIR [Suspect]
     Active Substance: VALACYCLOVIR HYDROCHLORIDE
     Indication: Antiviral treatment
     Dosage: 1000 MG, QD (1-0-1)
     Route: 048
     Dates: start: 20190523
  10. NOXAFIL [Suspect]
     Active Substance: POSACONAZOLE
     Indication: Fungal infection
     Dosage: 300 MG, QD (3-0-0)
     Route: 048
     Dates: start: 20190528, end: 20190621
  11. CRESTOR [Concomitant]
     Active Substance: ROSUVASTATIN CALCIUM
     Indication: Hypercholesterolaemia
     Dosage: 5 MG, QD
     Route: 048
     Dates: end: 20190522

REACTIONS (3)
  - Condition aggravated [Recovering/Resolving]
  - Hepatic cytolysis [Recovering/Resolving]
  - Cholestasis [Recovering/Resolving]

NARRATIVE: CASE EVENT DATE: 20190530
